FAERS Safety Report 8963070 (Version 1)
Quarter: 2012Q4

REPORT INFORMATION
  Report Type: 
  Country: US (occurrence: US)
  Receive Date: 20121213
  Receipt Date: 20121213
  Transmission Date: 20130627
  Serious: Yes (Other)
  Sender: FDA-Public Use
  Company Number: US-PFIZER INC-2012313677

PATIENT
  Age: 49 Year
  Sex: Female
  Weight: 88.44 kg

DRUGS (12)
  1. PRISTIQ [Suspect]
     Indication: GENERALIZED ANXIETY DISORDER
     Dosage: 50 mg, daily
     Dates: start: 2012, end: 20121208
  2. PRISTIQ [Suspect]
     Indication: POST-TRAUMATIC STRESS DISORDER
     Dosage: 100 mg, daily
     Dates: start: 20121209
  3. PROZAC [Suspect]
     Indication: GENERALIZED ANXIETY DISORDER
     Dosage: UNK
  4. PROZAC [Suspect]
     Indication: POST-TRAUMATIC STRESS DISORDER
  5. PAXIL [Suspect]
     Indication: GENERALIZED ANXIETY DISORDER
     Dosage: UNK
  6. PAXIL [Suspect]
     Indication: POST-TRAUMATIC STRESS DISORDER
  7. CELEXA [Suspect]
     Indication: GENERALIZED ANXIETY DISORDER
     Dosage: UNK
  8. CELEXA [Suspect]
     Indication: POST-TRAUMATIC STRESS DISORDER
  9. LEXAPRO [Suspect]
     Indication: GENERALIZED ANXIETY DISORDER
     Dosage: UNK
  10. LEXAPRO [Suspect]
     Indication: POST-TRAUMATIC STRESS DISORDER
  11. WELLBATRIN [Concomitant]
     Dosage: 300 mg, daily
  12. ADDERALL [Concomitant]
     Dosage: 30 mg, daily

REACTIONS (6)
  - Hypertension [Unknown]
  - Headache [Unknown]
  - Hypoaesthesia [Unknown]
  - Rash [Not Recovered/Not Resolved]
  - Dermatitis [Not Recovered/Not Resolved]
  - Acne [Not Recovered/Not Resolved]
